FAERS Safety Report 20828243 (Version 1)
Quarter: 2022Q2

REPORT INFORMATION
  Report Type: Spontaneous
  Country: US (occurrence: None)
  Receive Date: 20220513
  Receipt Date: 20220513
  Transmission Date: 20220721
  Serious: Yes (Life-Threatening)
  Sender: FDA-Public Use
  Company Number: None

PATIENT
  Age: 57 Year
  Sex: Female
  Weight: 113.85 kg

DRUGS (1)
  1. SELPERCATINIB [Suspect]
     Active Substance: SELPERCATINIB
     Indication: Thyroid cancer
     Dosage: FREQUENCY : TWICE A DAY;?
     Route: 048
     Dates: start: 20220420, end: 20220503

REACTIONS (6)
  - Vertebral artery dissection [None]
  - Subarachnoid haemorrhage [None]
  - Posterior reversible encephalopathy syndrome [None]
  - Unresponsive to stimuli [None]
  - Cardio-respiratory arrest [None]
  - Hypertension [None]

NARRATIVE: CASE EVENT DATE: 20220503
